FAERS Safety Report 9214869 (Version 1)
Quarter: 2013Q2

REPORT INFORMATION
  Report Type: Report from Study
  Country: JP (occurrence: JP)
  Receive Date: 20130405
  Receipt Date: 20130405
  Transmission Date: 20140414
  Serious: Yes (Death, Life-Threatening, Other)
  Sender: FDA-Public Use
  Company Number: JP-BRISTOL-MYERS SQUIBB COMPANY-14840458

PATIENT
  Age: 52 Year
  Sex: Male
  Weight: 56.3 kg

DRUGS (20)
  1. SPRYCEL [Suspect]
     Indication: CHRONIC MYELOID LEUKAEMIA
     Dosage: 25OCT2009
     Route: 048
     Dates: start: 20090924
  2. CYTARABINE [Concomitant]
     Indication: CHRONIC MYELOID LEUKAEMIA
     Route: 042
     Dates: start: 20091019, end: 20091023
  3. DAUNORUBICIN HCL [Concomitant]
     Indication: CHRONIC MYELOID LEUKAEMIA
     Route: 042
     Dates: start: 20091010, end: 20091021
  4. MUCOSTA [Concomitant]
     Route: 048
  5. TAKEPRON [Concomitant]
     Route: 048
  6. ALLELOCK [Concomitant]
     Dosage: TAB
     Route: 048
  7. LENDORMIN [Concomitant]
     Dosage: TAB
     Route: 048
  8. DESYREL [Concomitant]
     Dosage: TABS
     Route: 048
     Dates: start: 20091010
  9. ITRIZOLE [Concomitant]
     Indication: PROPHYLAXIS
     Dosage: FORMULATION:SOL
     Route: 048
     Dates: start: 20091019
  10. LASIX [Concomitant]
     Dosage: ALSO GIVEN ON 28OCT09 TO TREAT ADVERSE EVENT?FORMULATION:TAB
     Route: 048
  11. TENORMIN [Concomitant]
     Dosage: FORMULATION:TAB
     Route: 048
  12. FIRSTCIN [Concomitant]
     Indication: INFECTION
     Dosage: FORMULATION:INJ
     Route: 042
     Dates: start: 20091003, end: 20091010
  13. SOLU-CORTEF [Concomitant]
     Indication: CHRONIC MYELOID LEUKAEMIA
     Dosage: FORMULATION:INJ
     Route: 042
     Dates: start: 20091009
  14. ZOSYN [Concomitant]
     Indication: INFECTION
     Dosage: FORMULATION:INJ
     Route: 042
     Dates: start: 20091010
  15. KYTRIL [Concomitant]
     Dosage: FORMULATION:INJ
     Route: 042
     Dates: start: 20091019, end: 20091023
  16. OMEPRAL [Concomitant]
     Dosage: FORMULATION:INJ
     Route: 042
     Dates: start: 20091026
  17. LOPERAMIDE HCL [Concomitant]
     Route: 048
     Dates: start: 20091022
  18. CONCENTRATED RED BLOOD CELLS [Concomitant]
     Dates: start: 20091012, end: 20091027
  19. PLATELET CONCENTRATE [Concomitant]
     Dates: start: 20090928, end: 20091028
  20. TOBRACIN [Concomitant]
     Indication: INFECTION
     Dosage: FORMULATION:INJ
     Route: 042
     Dates: start: 20091013

REACTIONS (3)
  - Malignant neoplasm progression [Fatal]
  - Cerebral infarction [Not Recovered/Not Resolved]
  - Pulmonary oedema [Recovering/Resolving]
